FAERS Safety Report 4282955-1 (Version None)
Quarter: 2004Q1

REPORT INFORMATION
  Report Type: 
  Country: None (occurrence: None)
  Receive Date: 20040130
  Receipt Date: 20040120
  Transmission Date: 20041129
  Serious: Yes (Death, Hospitalization)
  Sender: FDA-Public Use
  Company Number: PHBS2004TW01042

PATIENT
  Age: 66 Year
  Sex: Male

DRUGS (7)
  1. CICLOSPORIN [Suspect]
     Indication: APLASTIC ANAEMIA
     Dosage: UNK, UNK
     Route: 065
     Dates: start: 19990501
  2. CICLOSPORIN [Suspect]
     Dosage: UNK, UNK
     Route: 065
     Dates: start: 20010101
  3. ATGAM [Concomitant]
     Dates: start: 19990501
  4. ATGAM [Concomitant]
     Dates: start: 20000701
  5. METHYLTESTOSTERONE [Concomitant]
  6. ANTIBIOTICS [Concomitant]
  7. PREDNISOLONE [Concomitant]

REACTIONS (16)
  - ASPERGILLOSIS [None]
  - BACTERAEMIA [None]
  - CELLULITIS [None]
  - CHILLS [None]
  - FEBRILE NEUTROPENIA [None]
  - HERPES SIMPLEX [None]
  - HYPOTENSION [None]
  - LIVER ABSCESS [None]
  - PSEUDOMONAS INFECTION [None]
  - PYREXIA [None]
  - RESPIRATORY FAILURE [None]
  - SEPSIS [None]
  - SPLEEN DISORDER [None]
  - SPLENECTOMY [None]
  - SPLENIC ABSCESS [None]
  - SPLENIC NEOPLASM MALIGNANCY UNSPECIFIED [None]
